FAERS Safety Report 9163473 (Version 1)
Quarter: 2013Q1

REPORT INFORMATION
  Report Type: Spontaneous
  Country: NL (occurrence: None)
  Receive Date: 20130221
  Receipt Date: 20130221
  Transmission Date: 20140127
  Serious: Yes (Other)
  Sender: FDA-Public Use
  Company Number: EUS-2013-00058

PATIENT
  Sex: Male

DRUGS (2)
  1. QUADRAMET [Suspect]
     Indication: METASTASES TO BONE
     Dosage: 18.5 MBQ/KG [0.5 MCI/KG] IN WEEK 1
  2. ZOMETA [Concomitant]

REACTIONS (1)
  - Anaemia [None]
